FAERS Safety Report 15620482 (Version 9)
Quarter: 2025Q4

REPORT INFORMATION
  Report Type: Report from Study
  Country: CA (occurrence: CA)
  Receive Date: 20181115
  Receipt Date: 20251110
  Transmission Date: 20260117
  Serious: Yes (Death, Other)
  Sender: ROCHE
  Company Number: CA-ROCHE-1749570

PATIENT
  Age: 65 Year
  Sex: Female
  Weight: 54.4 kg

DRUGS (33)
  1. ACTEMRA [Suspect]
     Active Substance: TOCILIZUMAB
     Indication: Neuromyelitis optica spectrum disorder
     Route: 042
     Dates: start: 20150819, end: 20180926
  2. ACTEMRA [Suspect]
     Active Substance: TOCILIZUMAB
     Route: 042
     Dates: start: 20170118
  3. ACTEMRA [Suspect]
     Active Substance: TOCILIZUMAB
     Route: 042
     Dates: start: 20170315
  4. ACTEMRA [Suspect]
     Active Substance: TOCILIZUMAB
     Route: 042
     Dates: start: 20170607
  5. ACTEMRA [Suspect]
     Active Substance: TOCILIZUMAB
     Route: 042
     Dates: start: 201708
  6. ACTEMRA [Suspect]
     Active Substance: TOCILIZUMAB
     Route: 042
     Dates: start: 201708
  7. ACTEMRA [Suspect]
     Active Substance: TOCILIZUMAB
     Route: 042
  8. ACTEMRA [Suspect]
     Active Substance: TOCILIZUMAB
     Route: 042
  9. ACTEMRA [Suspect]
     Active Substance: TOCILIZUMAB
     Route: 042
  10. ACTEMRA [Suspect]
     Active Substance: TOCILIZUMAB
     Route: 042
  11. ACTEMRA [Suspect]
     Active Substance: TOCILIZUMAB
     Route: 042
  12. ACTEMRA [Suspect]
     Active Substance: TOCILIZUMAB
     Route: 042
  13. ACTEMRA [Suspect]
     Active Substance: TOCILIZUMAB
     Route: 042
  14. ACTEMRA [Suspect]
     Active Substance: TOCILIZUMAB
     Route: 042
  15. ACTEMRA [Suspect]
     Active Substance: TOCILIZUMAB
     Route: 042
  16. ACTEMRA [Suspect]
     Active Substance: TOCILIZUMAB
     Route: 042
  17. ACTEMRA [Suspect]
     Active Substance: TOCILIZUMAB
     Route: 042
  18. ACTEMRA [Suspect]
     Active Substance: TOCILIZUMAB
     Route: 042
  19. ACTEMRA [Suspect]
     Active Substance: TOCILIZUMAB
     Route: 042
  20. ACTEMRA [Suspect]
     Active Substance: TOCILIZUMAB
     Route: 058
     Dates: start: 20230621, end: 20251022
  21. RITUXAN [Suspect]
     Active Substance: RITUXIMAB
     Indication: Neuromyelitis optica spectrum disorder
     Dosage: FREQUENCY TEXT:DAY 1, 15
     Route: 042
     Dates: start: 20150323
  22. RITUXAN [Suspect]
     Active Substance: RITUXIMAB
     Route: 042
     Dates: start: 20190115, end: 20190409
  23. RITUXAN [Suspect]
     Active Substance: RITUXIMAB
     Route: 042
     Dates: start: 20190725
  24. METHYLPREDNISOLONE [Suspect]
     Active Substance: METHYLPREDNISOLONE
     Indication: Premedication
     Route: 042
     Dates: start: 20150323
  25. LEVOTHYROXINE [Concomitant]
     Active Substance: LEVOTHYROXINE
  26. PREDNISONE [Concomitant]
     Active Substance: PREDNISONE
  27. AMLODIPINE [Concomitant]
     Active Substance: AMLODIPINE BESYLATE
     Dosage: FREQUENCY TEXT:DAILY
  28. ASPIRIN [Concomitant]
     Active Substance: ASPIRIN
     Dosage: EVERY SECOND DAY? FREQUENCY TEXT:DAILY
  29. ROSUVASTATIN [Concomitant]
     Active Substance: ROSUVASTATIN
  30. ASPIRIN [Concomitant]
     Active Substance: ASPIRIN
  31. PLAVIX [Concomitant]
     Active Substance: CLOPIDOGREL BISULFATE
  32. DIPHENHYDRAMINE HYDROCHLORIDE [Concomitant]
     Active Substance: DIPHENHYDRAMINE HYDROCHLORIDE
     Route: 048
     Dates: start: 20150323
  33. ACETAMINOPHEN [Concomitant]
     Active Substance: ACETAMINOPHEN
     Route: 048
     Dates: start: 20150323

REACTIONS (41)
  - Off label use [Unknown]
  - Headache [Unknown]
  - Abdominal pain [Unknown]
  - Urinary tract infection [Unknown]
  - Hypoaesthesia [Recovered/Resolved]
  - Paraesthesia [Recovered/Resolved]
  - Decreased appetite [Unknown]
  - Illness [Not Recovered/Not Resolved]
  - Heart rate decreased [Unknown]
  - Weight decreased [Unknown]
  - Bronchitis [Not Recovered/Not Resolved]
  - Nausea [Unknown]
  - Influenza like illness [Unknown]
  - Pain [Not Recovered/Not Resolved]
  - Tooth fracture [Unknown]
  - Gastrointestinal pain [Recovering/Resolving]
  - Myalgia [Unknown]
  - Musculoskeletal stiffness [Not Recovered/Not Resolved]
  - Arthralgia [Unknown]
  - Intentional product use issue [Unknown]
  - Asthenia [Unknown]
  - Pain in extremity [Unknown]
  - Blood pressure systolic increased [Unknown]
  - Microvascular coronary artery disease [Unknown]
  - Hypertension [Unknown]
  - Angina pectoris [Unknown]
  - Neuralgia [Not Recovered/Not Resolved]
  - Chest pain [Unknown]
  - Arterial occlusive disease [Unknown]
  - Malaise [Unknown]
  - Chest discomfort [Unknown]
  - Neurological symptom [Unknown]
  - Chest pain [Not Recovered/Not Resolved]
  - Death [Fatal]
  - Balance disorder [Recovering/Resolving]
  - Rheumatoid arthritis [Not Recovered/Not Resolved]
  - Somnolence [Unknown]
  - Blood pressure systolic abnormal [Unknown]
  - Cystitis [Unknown]
  - Abdominal pain upper [Unknown]
  - Cardiac disorder [Unknown]

NARRATIVE: CASE EVENT DATE: 20160101
